FAERS Safety Report 9861741 (Version 1)
Quarter: 2014Q1

REPORT INFORMATION
  Report Type: Spontaneous
  Country: US (occurrence: None)
  Receive Date: 20140131
  Receipt Date: 20140131
  Transmission Date: 20141002
  Serious: Yes (Hospitalization)
  Sender: FDA-Public Use
  Company Number: None

PATIENT
  Age: 48 Year
  Sex: Female

DRUGS (1)
  1. ADCIRCA [Suspect]
     Route: 048
     Dates: start: 20140108, end: 20140128

REACTIONS (3)
  - Vomiting [None]
  - Gastrointestinal haemorrhage [None]
  - Oesophageal ulcer [None]
